FAERS Safety Report 15534467 (Version 1)
Quarter: 2018Q4

REPORT INFORMATION
  Report Type: Spontaneous
  Country: IT (occurrence: IT)
  Receive Date: 20181022
  Receipt Date: 20181022
  Transmission Date: 20190205
  Serious: Yes (Other)
  Sender: FDA-Public Use
  Company Number: IT-AUROBINDO-AUR-APL-2018-051366

PATIENT
  Age: 67 Year
  Sex: Female
  Weight: 61 kg

DRUGS (6)
  1. ONDANSETRON HYDROCHLORIDE. [Concomitant]
     Active Substance: ONDANSETRON HYDROCHLORIDE
     Indication: PRODUCT USED FOR UNKNOWN INDICATION
     Dosage: 8 MILLIGRAM, IN TOTAL
  2. CARBOPLATIN. [Suspect]
     Active Substance: CARBOPLATIN
     Indication: SEROUS CYSTADENOCARCINOMA OVARY
     Dosage: 440 MILLIGRAM, 1 CYCLICAL
     Route: 065
     Dates: start: 20180118, end: 20180208
  3. HYDROCORTISONE HYDROGEN SUCCINATE [Concomitant]
     Active Substance: HYDROCORTISONE
     Indication: PRODUCT USED FOR UNKNOWN INDICATION
     Dosage: 100 MILLIGRAM, IN TOTAL
     Route: 065
     Dates: start: 20180208, end: 20180208
  4. PACLITAXEL. [Concomitant]
     Active Substance: PACLITAXEL
     Indication: SEROUS CYSTADENOCARCINOMA OVARY
     Dosage: 290 MILLIGRAM, 1 CYCLE
     Route: 065
  5. RANITIDINE HYDROCHLORIDE. [Concomitant]
     Active Substance: RANITIDINE HYDROCHLORIDE
     Indication: PRODUCT USED FOR UNKNOWN INDICATION
     Dosage: 100 MILLIGRAM, IN TOTAL
     Route: 065
  6. DEXAMETHASONE PHOSPHATE [Concomitant]
     Active Substance: DEXAMETHASONE PHOSPHATE
     Indication: PRODUCT USED FOR UNKNOWN INDICATION
     Dosage: 12 MILLIGRAM
     Route: 065
     Dates: start: 20180208, end: 20180208

REACTIONS (4)
  - Hypersensitivity [Recovered/Resolved]
  - Vomiting [Recovered/Resolved]
  - Chest discomfort [Recovered/Resolved]
  - Hypotension [Recovered/Resolved]

NARRATIVE: CASE EVENT DATE: 20180208
